FAERS Safety Report 14666027 (Version 1)
Quarter: 2018Q1

REPORT INFORMATION
  Report Type: Report from Study
  Country: IN (occurrence: IN)
  Receive Date: 20180321
  Receipt Date: 20180321
  Transmission Date: 20180509
  Serious: Yes (Death)
  Sender: FDA-Public Use
  Company Number: PHHY2018IN048652

PATIENT
  Age: 58 Year
  Sex: Male

DRUGS (1)
  1. REVOLADE [Suspect]
     Active Substance: ELTROMBOPAG
     Indication: APLASTIC ANAEMIA
     Dosage: 75 MG, UNK
     Route: 048
     Dates: start: 20170708

REACTIONS (1)
  - Disease progression [Fatal]
